FAERS Safety Report 17892043 (Version 1)
Quarter: 2020Q2

REPORT INFORMATION
  Report Type: Report from Study
  Country: None (occurrence: US)
  Receive Date: 20200613
  Receipt Date: 20200613
  Transmission Date: 20200714
  Serious: Yes (Other)
  Sender: FDA-Public Use
  Company Number: US-ABBVIE-20K-163-3439180-00

PATIENT
  Sex: Female

DRUGS (2)
  1. HUMIRA [Suspect]
     Active Substance: ADALIMUMAB
     Indication: RHEUMATOID ARTHRITIS
     Route: 058
  2. HUMIRA [Suspect]
     Active Substance: ADALIMUMAB
     Route: 058

REACTIONS (9)
  - Heart valve incompetence [Unknown]
  - Musculoskeletal discomfort [Unknown]
  - Heart valve replacement [Unknown]
  - Arthralgia [Not Recovered/Not Resolved]
  - Cystitis [Unknown]
  - Transient ischaemic attack [Unknown]
  - Injection site erythema [Unknown]
  - Injection site rash [Unknown]
  - Injection site nodule [Unknown]

NARRATIVE: CASE EVENT DATE: 2020
